FAERS Safety Report 18072619 (Version 1)
Quarter: 2020Q3

REPORT INFORMATION
  Report Type: Report from Study
  Country: PT (occurrence: PT)
  Receive Date: 20200727
  Receipt Date: 20200727
  Transmission Date: 20201103
  Serious: Yes (Other)
  Sender: FDA-Public Use
  Company Number: PT-ASTRAZENECA-2020SE91425

PATIENT
  Age: 1868 Day
  Sex: Male
  Weight: 20 kg

DRUGS (1)
  1. SELUMETINIB. [Suspect]
     Active Substance: SELUMETINIB
     Indication: NEUROFIBROMA
     Dosage: UNKNOWN
     Route: 048
     Dates: start: 20200512

REACTIONS (1)
  - Rash maculo-papular [Not Recovered/Not Resolved]

NARRATIVE: CASE EVENT DATE: 20200517
